FAERS Safety Report 15411461 (Version 1)
Quarter: 2018Q3

REPORT INFORMATION
  Report Type: Report from Study
  Country: US (occurrence: US)
  Receive Date: 20180921
  Receipt Date: 20180921
  Transmission Date: 20181010
  Serious: Yes (Hospitalization)
  Sender: FDA-Public Use
  Company Number: US-UNITED THERAPEUTICS-UNT-2018-014350

PATIENT
  Age: 61 Year
  Sex: Male
  Weight: 77.98 kg

DRUGS (8)
  1. UT?15C SR [Suspect]
     Active Substance: TREPROSTINIL DIOLAMINE
     Dosage: 2.5 MG
     Route: 048
  2. UT?15C SR [Suspect]
     Active Substance: TREPROSTINIL DIOLAMINE
     Dosage: UNK
     Route: 048
  3. ADEMPAS [Suspect]
     Active Substance: RIOCIGUAT
     Indication: PRODUCT USED FOR UNKNOWN INDICATION
     Dosage: 0.5 MG, TID
     Route: 065
  4. UT?15C SR [Suspect]
     Active Substance: TREPROSTINIL DIOLAMINE
     Indication: PULMONARY ARTERIAL HYPERTENSION
     Dosage: 3.75 MG, TID
     Route: 048
     Dates: start: 20180606
  5. UT?15C SR [Suspect]
     Active Substance: TREPROSTINIL DIOLAMINE
     Dosage: 1 MG
     Route: 048
  6. UT?15C SR [Suspect]
     Active Substance: TREPROSTINIL DIOLAMINE
     Dosage: 0.25 MG
     Route: 048
  7. UT?15C SR [Suspect]
     Active Substance: TREPROSTINIL DIOLAMINE
     Dosage: UNK
     Route: 048
  8. UT?15C SR [Suspect]
     Active Substance: TREPROSTINIL DIOLAMINE
     Dosage: 3.25 MG, TID
     Route: 048

REACTIONS (2)
  - Oxygen saturation decreased [Unknown]
  - Loss of consciousness [Recovering/Resolving]

NARRATIVE: CASE EVENT DATE: 2018
